FAERS Safety Report 11765979 (Version 2)
Quarter: 2015Q4

REPORT INFORMATION
  Report Type: Spontaneous
  Country: CZ (occurrence: CZ)
  Receive Date: 20151122
  Receipt Date: 20151209
  Transmission Date: 20160304
  Serious: Yes (Hospitalization, Other)
  Sender: FDA-Public Use
  Company Number: PHHY2015CZ151703

PATIENT
  Sex: Female

DRUGS (1)
  1. ZOMETA [Suspect]
     Active Substance: ZOLEDRONIC ACID
     Indication: PRODUCT USED FOR UNKNOWN INDICATION
     Dosage: UNK
     Route: 065
     Dates: start: 201302, end: 201407

REACTIONS (6)
  - Oral disorder [Unknown]
  - Osteonecrosis of jaw [Recovered/Resolved]
  - Breath odour [Unknown]
  - Feeding disorder [Unknown]
  - Weight decreased [Unknown]
  - Oral infection [Unknown]

NARRATIVE: CASE EVENT DATE: 201410
